FAERS Safety Report 8792233 (Version 1)
Quarter: 2012Q4

REPORT INFORMATION
  Report Type: 
  Country: US (occurrence: US)
  Receive Date: 20120918
  Receipt Date: 20120918
  Transmission Date: 20130627
  Serious: No
  Sender: FDA-Public Use
  Company Number: US-VERTEX PHARMACEUTICAL INC.-AE-2012-009032

PATIENT
  Sex: Female
  Weight: 77 kg

DRUGS (3)
  1. VX-950 [Suspect]
     Indication: HEPATITIS C
     Dosage: 750 mg, qd
     Route: 048
     Dates: start: 20120611, end: 20120903
  2. RIBASPHERE [Concomitant]
     Indication: HEPATITIS C
     Dosage: 600 mg, bid
     Dates: start: 20120611
  3. PEGASYS [Concomitant]
     Indication: HEPATITIS C
     Dosage: 180 ?g, UNK
     Route: 058
     Dates: start: 20120611

REACTIONS (5)
  - Hypotension [Unknown]
  - Dizziness [Unknown]
  - Fatigue [Unknown]
  - Rash generalised [Recovered/Resolved]
  - Pruritus [Not Recovered/Not Resolved]
